FAERS Safety Report 6056299-1 (Version None)
Quarter: 2009Q1

REPORT INFORMATION
  Report Type: 
  Country: None (occurrence: None)
  Receive Date: 20090129
  Receipt Date: 20090114
  Transmission Date: 20090719
  Serious: Yes (Hospitalization)
  Sender: FDA-Public Use
  Company Number: US-CELGENEUS-163-20785-09010696

PATIENT
  Sex: Female

DRUGS (3)
  1. THALOMID [Suspect]
     Indication: MULTIPLE MYELOMA
     Route: 048
     Dates: start: 20071211
  2. THALOMID [Suspect]
     Route: 048
     Dates: start: 20021231, end: 20040601
  3. THALOMID [Suspect]
     Route: 048
     Dates: start: 20021028, end: 20021101

REACTIONS (1)
  - RENAL FAILURE CHRONIC [None]
